FAERS Safety Report 24352204 (Version 1)
Quarter: 2024Q3

REPORT INFORMATION
  Report Type: Report from Study
  Country: AT (occurrence: AT)
  Receive Date: 20240923
  Receipt Date: 20240923
  Transmission Date: 20241016
  Serious: No
  Sender: ROCHE
  Company Number: AT-ROCHE-3101043

PATIENT
  Age: 74 Year
  Sex: Female
  Weight: 55.0 kg

DRUGS (11)
  1. HERCEPTIN [Suspect]
     Active Substance: TRASTUZUMAB
     Indication: HER2 positive breast cancer
     Route: 042
     Dates: start: 20190903, end: 20190903
  2. HERCEPTIN [Suspect]
     Active Substance: TRASTUZUMAB
     Dosage: MOST RECENT DOSE PRIOR TO AE 30/JUN/2021
     Route: 042
     Dates: start: 20190925
  3. PERJETA [Suspect]
     Active Substance: PERTUZUMAB
     Indication: HER2 positive breast cancer
     Route: 042
     Dates: start: 20190903, end: 20190903
  4. PERJETA [Suspect]
     Active Substance: PERTUZUMAB
     Dosage: MOST RECENT DOSE PRIOR TO AE 30/JUN/2021
     Route: 042
     Dates: start: 20190925
  5. NAVELBINE [Suspect]
     Active Substance: VINORELBINE TARTRATE
     Indication: HER2 positive breast cancer
     Dosage: FREQUENCY TEXT:OTHER
     Route: 048
     Dates: start: 20190903, end: 20191106
  6. NAVELBINE [Suspect]
     Active Substance: VINORELBINE TARTRATE
     Dosage: MOST RECENT DOSE PRIOR TO AE 19/FEB/2020? FREQUENCY TEXT:OTHER
     Route: 048
     Dates: start: 20191127
  7. FASLODEX [Suspect]
     Active Substance: FULVESTRANT
     Indication: HER2 positive breast cancer
     Route: 030
     Dates: start: 20200311, end: 20200513
  8. FASLODEX [Suspect]
     Active Substance: FULVESTRANT
     Route: 030
     Dates: start: 20200603, end: 20201028
  9. FASLODEX [Suspect]
     Active Substance: FULVESTRANT
     Dosage: MOST RECENT DOSE PRIOR TO AE 21/APR/2021
     Route: 030
     Dates: start: 20201028
  10. DEXAMETHASONE [Concomitant]
     Active Substance: DEXAMETHASONE
     Indication: Prophylaxis
     Dosage: ONGOING = CHECKED
     Route: 048
     Dates: start: 20200311
  11. BROMAZEPAM [Concomitant]
     Active Substance: BROMAZEPAM
     Dosage: ONGOING = CHECKED
     Dates: start: 20081217

REACTIONS (2)
  - Arthralgia [Recovered/Resolved]
  - Skin toxicity [Recovered/Resolved]

NARRATIVE: CASE EVENT DATE: 20200624
